FAERS Safety Report 7509820-8 (Version None)
Quarter: 2011Q2

REPORT INFORMATION
  Report Type: 
  Country: None (occurrence: None)
  Receive Date: 20110527
  Receipt Date: 20110517
  Transmission Date: 20111010
  Serious: Yes (Life-Threatening, Disabling)
  Sender: FDA-Public Use
  Company Number: A0927606A

PATIENT
  Age: 76 Year
  Sex: Male

DRUGS (12)
  1. VITAMIN D [Concomitant]
  2. TRICOR [Concomitant]
  3. JALYN [Suspect]
     Indication: PROSTATE CANCER METASTATIC
     Dosage: 1TAB PER DAY
     Route: 048
     Dates: start: 20101208
  4. LUPRON [Concomitant]
  5. PROZAC [Concomitant]
  6. OMEPRAZOLE [Concomitant]
  7. CRYSTALLINE VIT B12 INJ [Concomitant]
  8. ASPIRIN [Concomitant]
  9. LOVAZA [Concomitant]
  10. CINNAMON [Concomitant]
  11. XANAX [Concomitant]
  12. LYSINE [Concomitant]

REACTIONS (4)
  - MUSCULAR WEAKNESS [None]
  - HYPOTENSION [None]
  - CHEST DISCOMFORT [None]
  - PALLOR [None]
